FAERS Safety Report 10607090 (Version 1)
Quarter: 2014Q4

REPORT INFORMATION
  Report Type: Spontaneous
  Country: US (occurrence: None)
  Receive Date: 20141124
  Receipt Date: 20141124
  Transmission Date: 20150529
  Serious: Yes (Hospitalization)
  Sender: FDA-Public Use
  Company Number: None

PATIENT
  Age: 86 Year
  Sex: Male
  Weight: 63.6 kg

DRUGS (1)
  1. TAMSULOSIN [Suspect]
     Active Substance: TAMSULOSIN
     Route: 048
     Dates: start: 20140801, end: 20140820

REACTIONS (8)
  - Dysphonia [None]
  - Angioedema [None]
  - Hypersensitivity [None]
  - Nervous system disorder [None]
  - Neoplasm malignant [None]
  - Dysphagia [None]
  - Oesophageal compression [None]
  - Oropharyngeal discomfort [None]

NARRATIVE: CASE EVENT DATE: 20140820
